FAERS Safety Report 11304192 (Version 1)
Quarter: 2015Q3

REPORT INFORMATION
  Report Type: Spontaneous
  Country: US (occurrence: US)
  Receive Date: 20150723
  Receipt Date: 20150723
  Transmission Date: 20151125
  Serious: No
  Sender: FDA-Public Use
  Company Number: US-JNJFOC-20140815749

PATIENT
  Age: 83 Year
  Sex: Female
  Weight: 58.97 kg

DRUGS (5)
  1. SANCTURA [Concomitant]
     Active Substance: TROSPIUM CHLORIDE
     Indication: BLADDER DISORDER
     Route: 065
  2. PEPCID AC [Suspect]
     Active Substance: FAMOTIDINE
     Indication: HYPERCHLORHYDRIA
     Route: 048
  3. MIDODRINE [Concomitant]
     Active Substance: MIDODRINE
     Indication: BLOOD PRESSURE INCREASED
     Route: 065
  4. SINEMET [Concomitant]
     Active Substance: CARBIDOPA\LEVODOPA
     Indication: PARKINSON^S DISEASE
     Route: 065
  5. COUMADIN [Concomitant]
     Active Substance: WARFARIN SODIUM
     Indication: CEREBROVASCULAR ACCIDENT PROPHYLAXIS
     Route: 065

REACTIONS (1)
  - Drug ineffective [Unknown]
